FAERS Safety Report 24918239 (Version 2)
Quarter: 2025Q1

REPORT INFORMATION
  Report Type: Spontaneous
  Country: US (occurrence: US)
  Receive Date: 20250203
  Receipt Date: 20250203
  Transmission Date: 20250408
  Serious: Yes (Other)
  Sender: ALKERMES
  Company Number: US-ALKERMES INC.-ALK-2025-000253

PATIENT
  Age: 34 Year
  Sex: Male

DRUGS (3)
  1. ARISTADA [Suspect]
     Active Substance: ARIPIPRAZOLE LAUROXIL
     Indication: Product used for unknown indication
     Route: 030
  2. ARISTADA INITIO [Suspect]
     Active Substance: ARIPIPRAZOLE LAUROXIL
     Indication: Product used for unknown indication
     Route: 030
  3. ARIPIPRAZOLE +PHARMA [Concomitant]
     Indication: Product used for unknown indication
     Route: 048

REACTIONS (2)
  - Serotonin syndrome [Unknown]
  - Akathisia [Unknown]
